FAERS Safety Report 18735950 (Version 1)
Quarter: 2021Q1

REPORT INFORMATION
  Report Type: Spontaneous
  Country: US (occurrence: US)
  Receive Date: 20210113
  Receipt Date: 20210113
  Transmission Date: 20210419
  Serious: Yes (Hospitalization)
  Sender: FDA-Public Use
  Company Number: None

PATIENT
  Sex: Male
  Weight: 77.4 kg

DRUGS (11)
  1. NORCO [Concomitant]
     Active Substance: ACETAMINOPHEN\HYDROCODONE BITARTRATE
  2. HUMALOG [Concomitant]
     Active Substance: INSULIN LISPRO
  3. KEPPRA [Concomitant]
     Active Substance: LEVETIRACETAM
  4. LISINOPRIL. [Concomitant]
     Active Substance: LISINOPRIL
  5. SENEXON [Concomitant]
     Active Substance: SENNOSIDES A AND B
  6. BACTRIM DS [Concomitant]
     Active Substance: SULFAMETHOXAZOLE\TRIMETHOPRIM
  7. DEXAMETHASONE. [Concomitant]
     Active Substance: DEXAMETHASONE
  8. TEMOZOLOMIDE. [Suspect]
     Active Substance: TEMOZOLOMIDE
     Indication: BRAIN NEOPLASM MALIGNANT
     Dates: start: 20201211
  9. AMLODIPINE [Concomitant]
     Active Substance: AMLODIPINE BESYLATE
  10. LANTUS [Concomitant]
     Active Substance: INSULIN GLARGINE
  11. PROCHLORPERAZINE. [Concomitant]
     Active Substance: PROCHLORPERAZINE

REACTIONS (2)
  - Localised infection [None]
  - Procedural complication [None]
